FAERS Safety Report 9641883 (Version 1)
Quarter: 2013Q4

REPORT INFORMATION
  Report Type: Spontaneous
  Country: GB (occurrence: None)
  Receive Date: 20131021
  Receipt Date: 20131021
  Transmission Date: 20140711
  Serious: Yes (Other)
  Sender: FDA-Public Use
  Company Number: 2013P1020114

PATIENT
  Age: 41 Year
  Sex: Female

DRUGS (4)
  1. ETHAMBUTOL [Suspect]
  2. ISONIAZID [Suspect]
  3. RIFAMPICIN [Suspect]
  4. PYRAZINAMIDE [Suspect]

REACTIONS (3)
  - Drug reaction with eosinophilia and systemic symptoms [None]
  - Lethargy [None]
  - Myalgia [None]
